FAERS Safety Report 25052046 (Version 2)
Quarter: 2025Q1

REPORT INFORMATION
  Report Type: Report from Study
  Country: US (occurrence: US)
  Receive Date: 20250307
  Receipt Date: 20250321
  Transmission Date: 20250409
  Serious: Yes (Death, Hospitalization, Other)
  Sender: SYNDAX
  Company Number: US-SYNDAX PHARMACEUTICALS, INC.-2025US000197

PATIENT
  Age: 2 Year
  Sex: Female
  Weight: 17.1 kg

DRUGS (3)
  1. REVUFORJ [Suspect]
     Active Substance: REVUMENIB CITRATE
     Indication: Leukaemia recurrent
     Dosage: 65 MILLIGRAM/SQ. METER/DOSE, BID
     Route: 048
     Dates: start: 20241230, end: 20250110
  2. VENETOCLAX [Concomitant]
     Active Substance: VENETOCLAX
     Indication: Leukaemia recurrent
     Route: 065
     Dates: start: 20241230, end: 20250110
  3. AZACITIDINE [Concomitant]
     Active Substance: AZACITIDINE
     Indication: Leukaemia
     Route: 065
     Dates: start: 20241230, end: 20250110

REACTIONS (2)
  - Leukaemia recurrent [Fatal]
  - Myelosuppression [Not Recovered/Not Resolved]

NARRATIVE: CASE EVENT DATE: 20250110
